FAERS Safety Report 12270374 (Version 1)
Quarter: 2016Q2

REPORT INFORMATION
  Report Type: Spontaneous
  Country: CA (occurrence: CA)
  Receive Date: 20160415
  Receipt Date: 20160415
  Transmission Date: 20160815
  Serious: Yes (Hospitalization)
  Sender: FDA-Public Use
  Company Number: CA-ROCHE-1741677

PATIENT
  Age: 23 Month
  Sex: Female
  Weight: 12 kg

DRUGS (1)
  1. MYCOPHENOLATE MOFETIL. [Suspect]
     Active Substance: MYCOPHENOLATE MOFETIL
     Indication: AUTOIMMUNE LYMPHOPROLIFERATIVE SYNDROME
     Dosage: FOR 374 DAYS
     Route: 048

REACTIONS (5)
  - Partial seizures [Recovered/Resolved]
  - Altered state of consciousness [Recovered/Resolved]
  - Nuclear magnetic resonance imaging brain abnormal [Recovered/Resolved]
  - Posterior reversible encephalopathy syndrome [Recovered/Resolved]
  - Visual impairment [Recovered/Resolved]
